FAERS Safety Report 8887868 (Version 5)
Quarter: 2013Q1

REPORT INFORMATION
  Report Type: Spontaneous
  Country: US (occurrence: US)
  Receive Date: 20121106
  Receipt Date: 20130204
  Transmission Date: 20140127
  Serious: Yes (Hospitalization)
  Sender: FDA-Public Use
  Company Number: US-BIOGENIDEC-2012BI047890

PATIENT
  Age: 51 Year
  Sex: Female

DRUGS (13)
  1. TYSABRI [Suspect]
     Indication: MULTIPLE SCLEROSIS
     Route: 042
     Dates: start: 20081110, end: 20120928
  2. TYSABRI [Suspect]
     Indication: MULTIPLE SCLEROSIS
     Route: 042
     Dates: start: 20121121
  3. OXYBUTYNIN [Concomitant]
  4. CLORAZEPAM [Concomitant]
  5. AMANTADINE [Concomitant]
  6. CELEXA [Concomitant]
  7. TYLENOL [Concomitant]
  8. MILK OF MAGNESIA [Concomitant]
  9. ATIVAN [Concomitant]
  10. LASIX [Concomitant]
  11. BENADRYL [Concomitant]
  12. VITAMINS [Concomitant]
  13. KETOCONAZOLE [Concomitant]

REACTIONS (2)
  - Metabolic encephalopathy [Recovered/Resolved]
  - Fall [Not Recovered/Not Resolved]
